FAERS Safety Report 7629608-7 (Version None)
Quarter: 2011Q3

REPORT INFORMATION
  Report Type: 
  Country: None (occurrence: None)
  Receive Date: 20110715
  Receipt Date: 20110701
  Transmission Date: 20111222
  Serious: Yes (Other)
  Sender: FDA-Public Use
  Company Number: 968164

PATIENT
  Age: 45 Year
  Sex: Female

DRUGS (4)
  1. LEUCOVORIN CALCIUM [Suspect]
     Indication: COLON CANCER METASTATIC
     Dosage: 400 MILLIGRAMS/SQUARE METER, 1 DAY, FOR 11 CYCLES
  2. ELOXATIN [Suspect]
     Indication: COLON CANCER METASTATIC
     Dosage: SEE IMAGE
     Route: 041
  3. FLUOROURACIL [Suspect]
     Indication: COLON CANCER METASTATIC
     Dosage: 400 MILLIGRAMS/SQUARE METER, 1 DAY, FOR 11 CYCLES
  4. AVASTIN [Suspect]
     Indication: COLON CANCER METASTATIC
     Dosage: 1 DAY

REACTIONS (2)
  - DYSPNOEA [None]
  - ERYTHEMA [None]
